FAERS Safety Report 21493420 (Version 1)
Quarter: 2022Q4

REPORT INFORMATION
  Report Type: Spontaneous
  Country: FR (occurrence: FR)
  Receive Date: 20221021
  Receipt Date: 20221021
  Transmission Date: 20230112
  Serious: Yes (Life-Threatening, Hospitalization)
  Sender: FDA-Public Use
  Company Number: None

PATIENT
  Age: 82 Year
  Sex: Male
  Weight: 76.5 kg

DRUGS (11)
  1. ENALAPRIL MALEATE [Interacting]
     Active Substance: ENALAPRIL MALEATE
     Indication: Cardiac failure
     Dosage: 10 MILLIGRAM DAILY; 10MG IN THE MORNING, THERAPY START DATE : 10 MG,
     Dates: end: 202203
  2. BACTRIM [Interacting]
     Active Substance: SULFAMETHOXAZOLE\TRIMETHOPRIM
     Indication: Antibiotic prophylaxis
     Dosage: DURATION : 7 DAY
     Dates: start: 20220215, end: 20220222
  3. ASPIRIN [Concomitant]
     Active Substance: ASPIRIN
     Indication: Disease risk factor
     Dosage: 100 MILLIGRAM DAILY; 100 MG AT NOON
  4. SIMVASTATIN [Concomitant]
     Active Substance: SIMVASTATIN
     Indication: Dyslipidaemia
     Dosage: 20 MILLIGRAM DAILY; 20MG IN THE EVENING
  5. GABAPENTIN [Concomitant]
     Active Substance: GABAPENTIN
     Indication: Neuropathy peripheral
     Dosage: 1600 MILLIGRAM DAILY; 2 TABLETS OF 800MG MORNING, NOON AND EVENING
  6. RIVOTRIL [Concomitant]
     Active Substance: CLONAZEPAM
     Indication: Product used for unknown indication
     Dosage: 10 GTT DAILY; 4 DROPS MORNING, 6 DROPS AT BEDTIME, RIVOTRIL 2.5 MG/ML, ORAL DROP SOLUTION
  7. SOLUPRED [Concomitant]
     Indication: Interstitial lung disease
     Dates: start: 202201
  8. CORVASAL [Concomitant]
     Indication: Angina pectoris
     Dosage: 6 MILLIGRAM DAILY; 2 MG MORNING, NOON AND EVENING,CORVASAL 2 MG, SCORED TABLET
  9. PANTOPRAZOLE [Concomitant]
     Active Substance: PANTOPRAZOLE
     Indication: Product used for unknown indication
     Dosage: 40 MILLIGRAM DAILY; 40MG IN THE EVENING
  10. BETAHISTINE HYDROCHLORIDE [Concomitant]
     Active Substance: BETAHISTINE HYDROCHLORIDE
     Indication: Product used for unknown indication
     Dosage: 16 MILLIGRAM DAILY; 8 MG MORNING AND EVENING
  11. METFORMIN PAMOATE [Concomitant]
     Active Substance: METFORMIN PAMOATE
     Indication: Type 2 diabetes mellitus
     Dosage: 2100 MILLIGRAM DAILY; 700MG MORNING, NOON AND EVENING, STAGID 700 MG, SCORED TABLET

REACTIONS (3)
  - Acute kidney injury [Recovered/Resolved]
  - Hyperkalaemia [Recovered/Resolved]
  - Drug interaction [Recovered/Resolved]

NARRATIVE: CASE EVENT DATE: 20220215
